FAERS Safety Report 6924410-3 (Version None)
Quarter: 2010Q3

REPORT INFORMATION
  Report Type: 
  Country: None (occurrence: None)
  Receive Date: 20100803
  Receipt Date: 20100526
  Transmission Date: 20110219
  Serious: Yes (Hospitalization)
  Sender: FDA-Public Use
  Company Number: OMX-2010-00059

PATIENT
  Age: 47 Year
  Sex: Female

DRUGS (2)
  1. SURGIFLO [Suspect]
     Indication: CYSTOPEXY
     Dosage: INTRAVENOUS
     Route: 042
     Dates: start: 20091124, end: 20091124
  2. EVITHROM [Suspect]
     Indication: HAEMOSTASIS

REACTIONS (2)
  - DIZZINESS [None]
  - PULMONARY EMBOLISM [None]
